FAERS Safety Report 25524255 (Version 2)
Quarter: 2025Q3

REPORT INFORMATION
  Report Type: Spontaneous
  Country: IN (occurrence: IN)
  Receive Date: 20250707
  Receipt Date: 20250711
  Transmission Date: 20251020
  Serious: Yes (Life-Threatening, Other)
  Sender: PFIZER
  Company Number: IN-PFIZER INC-202500132314

PATIENT
  Age: 42 Year
  Sex: Female

DRUGS (2)
  1. TRANEXAMIC ACID [Suspect]
     Active Substance: TRANEXAMIC ACID
     Indication: Post procedural haemorrhage
     Route: 042
     Dates: start: 20250406, end: 20250406
  2. TRANEXAMIC ACID [Suspect]
     Active Substance: TRANEXAMIC ACID
     Indication: Traumatic haemorrhage
     Dosage: 500 MG, EVERY 8 HOURS
     Route: 042
     Dates: start: 20250406, end: 20250407

REACTIONS (2)
  - Myoclonic epilepsy [Recovered/Resolved]
  - Delirium [Recovered/Resolved]

NARRATIVE: CASE EVENT DATE: 20250407
